FAERS Safety Report 6304120-6 (Version None)
Quarter: 2009Q3

REPORT INFORMATION
  Report Type: 
  Country: None (occurrence: None)
  Receive Date: 20090806
  Receipt Date: 20090724
  Transmission Date: 20100115
  Serious: Yes (Hospitalization)
  Sender: FDA-Public Use
  Company Number: 2009AL001696

PATIENT
  Age: 72 Year
  Sex: Female

DRUGS (71)
  1. DIGOXIN [Suspect]
     Indication: CARDIAC DISORDER
     Dosage: 0.25MG, PO
     Route: 048
     Dates: start: 20070622
  2. METFORMIN HCL [Concomitant]
  3. GLYBURIDE [Concomitant]
  4. PANTOPRAZOLE SODIUM [Concomitant]
  5. LEVOTHYROXINE [Concomitant]
  6. ENALAPRIL MALEATE [Concomitant]
  7. OS-CAL [Concomitant]
  8. NIFEDIPINE [Concomitant]
  9. METOPROLOL SUCCINATE [Concomitant]
  10. CIPRO [Concomitant]
  11. ASPIRIN [Concomitant]
  12. LIPITOR [Concomitant]
  13. PREMARIN [Concomitant]
  14. UNITHROID [Concomitant]
  15. PEPCID [Concomitant]
  16. ALTACE [Concomitant]
  17. PREVACID [Concomitant]
  18. TOPROL-XL [Concomitant]
  19. NEXIUM [Concomitant]
  20. CENTRUM [Concomitant]
  21. PROTONIX [Concomitant]
  22. LOPRESSOR [Concomitant]
  23. MAGNESIUM SULFATE [Concomitant]
  24. SYNTHROID [Concomitant]
  25. PROCARDIA [Concomitant]
  26. VASOTEC [Concomitant]
  27. ALLEGRA [Concomitant]
  28. GOLYTELY [Concomitant]
  29. LIPITOR [Concomitant]
  30. NITROSTAT [Concomitant]
  31. AUGMENTIN [Concomitant]
  32. PANMIST JR [Concomitant]
  33. AMOXICILLIN [Concomitant]
  34. GEMFIBROZIL [Concomitant]
  35. LEVAQUIN [Concomitant]
  36. GLUCOPHAGE [Concomitant]
  37. ANEMAGEN [Concomitant]
  38. ZYRTEC [Concomitant]
  39. TOPROL-XL [Concomitant]
  40. ICAR-C [Concomitant]
  41. NITROFUR MAC [Concomitant]
  42. UNIMART [Concomitant]
  43. ZYRTEC-D 12 HOUR [Concomitant]
  44. NITROGLYCERIN [Concomitant]
  45. ASCENSIA ELITE [Concomitant]
  46. BACTROBAN [Concomitant]
  47. LORTUSS DM [Concomitant]
  48. ASCENSIA MICROLET [Concomitant]
  49. PRINCIPEN [Concomitant]
  50. DIPHEN/ATROP [Concomitant]
  51. HYDROCHLOROTHIAZIDE [Concomitant]
  52. GLIPIZIDE [Concomitant]
  53. FE C [Concomitant]
  54. NASAREL [Concomitant]
  55. JAYCOF-HC [Concomitant]
  56. AZITHROMYCIN [Concomitant]
  57. NITROGLYCERIN [Concomitant]
  58. PLAVIX [Concomitant]
  59. AMOX/K CLAV [Concomitant]
  60. PROPO-N/APAP [Concomitant]
  61. CEFADROXIL [Concomitant]
  62. GLUCO ELITE [Concomitant]
  63. MAG OXIDE [Concomitant]
  64. ASCENSIA CONTOUR [Concomitant]
  65. TAMIFLU [Concomitant]
  66. PHENADOZ [Concomitant]
  67. CIPROFLOXACIN [Concomitant]
  68. FINACEA [Concomitant]
  69. ICAR-C PLUS [Concomitant]
  70. NEVANAC [Concomitant]
  71. VIGAMOX [Concomitant]

REACTIONS (21)
  - ANAEMIA [None]
  - ANHEDONIA [None]
  - ANXIETY [None]
  - ASTHENIA [None]
  - DEHYDRATION [None]
  - DIARRHOEA [None]
  - ECONOMIC PROBLEM [None]
  - GASTRITIS [None]
  - GASTRODUODENITIS [None]
  - HYPERTENSION [None]
  - HYPOMAGNESAEMIA [None]
  - HYPOPHAGIA [None]
  - HYPOTHYROIDISM [None]
  - MULTIPLE INJURIES [None]
  - NAUSEA [None]
  - OLIGODIPSIA [None]
  - PAIN [None]
  - PALPITATIONS [None]
  - THERAPEUTIC AGENT TOXICITY [None]
  - UNEVALUABLE EVENT [None]
  - URINARY TRACT INFECTION [None]
